FAERS Safety Report 7913690-3 (Version None)
Quarter: 2011Q4

REPORT INFORMATION
  Report Type: 
  Country: None (occurrence: None)
  Receive Date: 20111115
  Receipt Date: 20111108
  Transmission Date: 20120403
  Serious: Yes (Death, Other)
  Sender: FDA-Public Use
  Company Number: AT-CELGENEUS-009-21880-11111211

PATIENT

DRUGS (4)
  1. DOXORUBICIN HCL [Concomitant]
     Indication: MULTIPLE MYELOMA
     Dosage: 50 MILLIGRAM/SQ. METER
     Route: 065
  2. DEXAMETHASONE [Concomitant]
     Indication: MULTIPLE MYELOMA
     Dosage: 20 MILLIGRAM
     Route: 065
  3. REVLIMID [Suspect]
     Indication: MULTIPLE MYELOMA
     Dosage: 15-25 MG/DAY
     Route: 048
  4. BORTEZOMIB [Concomitant]
     Indication: MULTIPLE MYELOMA
     Dosage: 1 MILLIGRAM/SQ. METER
     Route: 065

REACTIONS (7)
  - ANAEMIA [None]
  - MUSCLE SPASMS [None]
  - DIARRHOEA [None]
  - BRONCHOPULMONARY ASPERGILLOSIS [None]
  - THROMBOCYTOPENIA [None]
  - DEATH [None]
  - LEUKOPENIA [None]
